FAERS Safety Report 9419056 (Version 5)
Quarter: 2014Q2

REPORT INFORMATION
  Report Type: Report from Study
  Country: JP (occurrence: JP)
  Receive Date: 20130725
  Receipt Date: 20140623
  Transmission Date: 20141212
  Serious: Yes (Death, Life-Threatening, Other)
  Sender: FDA-Public Use
  Company Number: PHHY2013JP078855

PATIENT
  Age: 39 Year
  Sex: Male
  Weight: 68 kg

DRUGS (15)
  1. LEPONEX / CLOZARIL [Suspect]
     Indication: SCHIZOPHRENIA
     Dosage: 12.5 MG
     Route: 048
     Dates: start: 20130710, end: 20130710
  2. LEPONEX / CLOZARIL [Suspect]
     Indication: SCHIZOPHRENIA, DISORGANISED TYPE
     Dosage: 25 MG, UNK
     Route: 048
     Dates: start: 20130711, end: 20130713
  3. LEPONEX / CLOZARIL [Suspect]
     Dosage: 50 MG, UNK
     Route: 048
     Dates: start: 20130714, end: 20130716
  4. LEPONEX / CLOZARIL [Suspect]
     Dosage: 75 MG, UNK
     Route: 048
     Dates: start: 20130717, end: 20130718
  5. LEPONEX / CLOZARIL [Suspect]
     Dosage: 100 MG, UNK
     Route: 048
     Dates: start: 20130719, end: 20130719
  6. RISPERDAL [Concomitant]
     Dosage: 10 MG, UNK
     Route: 048
  7. HIRNAMIN [Concomitant]
     Dosage: 25 MG, UNK
     Route: 048
     Dates: start: 20130716, end: 20130719
  8. BENZALIN [Concomitant]
     Dosage: 5 MG
     Route: 048
  9. BENZALIN [Concomitant]
     Dosage: 15 MG, UNK
     Route: 048
     Dates: start: 20130710
  10. BENZALIN [Concomitant]
     Dosage: 20 MG, UNK
     Route: 048
     Dates: end: 20130715
  11. SOLANAX [Concomitant]
     Indication: SCHIZOPHRENIA, DISORGANISED TYPE
     Dosage: 24 MG
     Route: 048
     Dates: start: 20130712, end: 20130719
  12. RISPERIDONE [Concomitant]
     Dosage: 4 MG
     Route: 048
     Dates: start: 20130713, end: 20130719
  13. LIMAS [Concomitant]
     Indication: SCHIZOPHRENIA, DISORGANISED TYPE
     Dosage: 400 MG
     Route: 048
     Dates: start: 20130710, end: 20130719
  14. MAGNESIUM OXIDE [Concomitant]
     Dosage: 2000 MG
     Route: 048
     Dates: start: 20130710, end: 20130719
  15. LACTEC G [Concomitant]
     Indication: MEDICAL DEVICE COMPLICATION
     Dosage: 500 ML, UNK
     Dates: start: 20130720

REACTIONS (27)
  - Pneumonia [Fatal]
  - Productive cough [Fatal]
  - Pyrexia [Fatal]
  - White blood cell count increased [Fatal]
  - Neutrophil count increased [Fatal]
  - Heart rate increased [Fatal]
  - Circulatory collapse [Fatal]
  - Acute respiratory failure [Fatal]
  - Interstitial lung disease [Fatal]
  - Respiratory arrest [Unknown]
  - Lymphocyte count decreased [Unknown]
  - Hallucination [Unknown]
  - Delusion [Unknown]
  - Insomnia [Unknown]
  - Decreased immune responsiveness [Unknown]
  - Incoherent [Unknown]
  - Communication disorder [Unknown]
  - Sputum abnormal [Unknown]
  - Peripheral coldness [Unknown]
  - Oedema peripheral [Unknown]
  - Screaming [Unknown]
  - Abnormal behaviour [Unknown]
  - Stress [Unknown]
  - Agitation [Unknown]
  - Salivary hypersecretion [Unknown]
  - Restlessness [Unknown]
  - Blood glucose increased [Recovered/Resolved]
